FAERS Safety Report 6203169-1 (Version None)
Quarter: 2009Q2

REPORT INFORMATION
  Report Type: 
  Country: None (occurrence: None)
  Receive Date: 20090526
  Receipt Date: 20090526
  Transmission Date: 20091009
  Serious: Yes (Hospitalization)
  Sender: FDA-Public Use
  Company Number: None

PATIENT
  Age: 40 Year
  Sex: Female
  Weight: 79.3795 kg

DRUGS (2)
  1. AVASTIN [Suspect]
     Indication: TONGUE NEOPLASM MALIGNANT STAGE UNSPECIFIED
     Dosage: 15 MG/KG Q 21 DAYS IV DRIP
     Route: 042
     Dates: start: 20090423, end: 20090522
  2. ALIMTA [Suspect]
     Dosage: 500 MG/M2 Q 21 DAYS IV DRIP
     Route: 041
     Dates: start: 20090423, end: 20090522

REACTIONS (7)
  - ALANINE AMINOTRANSFERASE ABNORMAL [None]
  - BLOOD ALBUMIN ABNORMAL [None]
  - FATIGUE [None]
  - HAEMOGLOBIN ABNORMAL [None]
  - HYPOPHAGIA [None]
  - LOBAR PNEUMONIA [None]
  - NAUSEA [None]
